FAERS Safety Report 20362007 (Version 2)
Quarter: 2022Q1

REPORT INFORMATION
  Report Type: Spontaneous
  Country: US (occurrence: US)
  Receive Date: 20220121
  Receipt Date: 20220125
  Transmission Date: 20220423
  Serious: No
  Sender: FDA-Public Use
  Company Number: US-JNJFOC-20220131469

PATIENT
  Sex: Female

DRUGS (1)
  1. STELARA [Suspect]
     Active Substance: USTEKINUMAB
     Indication: Product used for unknown indication
     Route: 058

REACTIONS (1)
  - COVID-19 [Unknown]
